FAERS Safety Report 7574103-7 (Version None)
Quarter: 2011Q2

REPORT INFORMATION
  Report Type: 
  Country: None (occurrence: None)
  Receive Date: 20110627
  Receipt Date: 20110524
  Transmission Date: 20111010
  Serious: No
  Sender: FDA-Public Use
  Company Number: US-BAYER-2011-045793

PATIENT
  Age: 68 Year
  Weight: 59 kg

DRUGS (9)
  1. ASPIRIN [Suspect]
     Route: 048
  2. FISH OIL [Concomitant]
  3. GLUCOSAMIN [Concomitant]
  4. CHONDROITIN [Concomitant]
  5. RED YEAST RICE [Concomitant]
  6. CALCIUM CARBONATE [Concomitant]
  7. ALEVE (CAPLET) [Suspect]
     Indication: BACK PAIN
     Dosage: UNK, PRN
     Route: 048
     Dates: start: 20110510
  8. VITAMIN B [Concomitant]
  9. VITAMIN D [Concomitant]

REACTIONS (2)
  - NAUSEA [None]
  - RETCHING [None]
